FAERS Safety Report 25204380 (Version 1)
Quarter: 2025Q2

REPORT INFORMATION
  Report Type: Spontaneous
  Country: FR (occurrence: FR)
  Receive Date: 20250416
  Receipt Date: 20250416
  Transmission Date: 20250717
  Serious: Yes (Other)
  Sender: MYLAN
  Company Number: None

PATIENT
  Age: 24 Year
  Sex: Female
  Weight: 60 kg

DRUGS (36)
  1. DYMISTA [Suspect]
     Active Substance: AZELASTINE HYDROCHLORIDE\FLUTICASONE PROPIONATE
     Indication: Hypersensitivity
  2. DYMISTA [Suspect]
     Active Substance: AZELASTINE HYDROCHLORIDE\FLUTICASONE PROPIONATE
     Route: 045
  3. DYMISTA [Suspect]
     Active Substance: AZELASTINE HYDROCHLORIDE\FLUTICASONE PROPIONATE
     Route: 045
  4. DYMISTA [Suspect]
     Active Substance: AZELASTINE HYDROCHLORIDE\FLUTICASONE PROPIONATE
  5. DUPHALAC [Suspect]
     Active Substance: LACTULOSE
     Indication: Constipation
  6. DUPHALAC [Suspect]
     Active Substance: LACTULOSE
     Route: 048
  7. DUPHALAC [Suspect]
     Active Substance: LACTULOSE
     Route: 048
  8. DUPHALAC [Suspect]
     Active Substance: LACTULOSE
  9. PAROXETINE [Suspect]
     Active Substance: PAROXETINE
     Indication: Depression
     Dosage: 20 MILLIGRAM, QD
  10. PAROXETINE [Suspect]
     Active Substance: PAROXETINE
     Dosage: 20 MILLIGRAM, QD
     Route: 048
  11. PAROXETINE [Suspect]
     Active Substance: PAROXETINE
     Dosage: 20 MILLIGRAM, QD
     Route: 048
  12. PAROXETINE [Suspect]
     Active Substance: PAROXETINE
     Dosage: 20 MILLIGRAM, QD
  13. SERETIDE [Suspect]
     Active Substance: FLUTICASONE PROPIONATE\SALMETEROL XINAFOATE
     Indication: Asthma
     Dosage: 2 DOSAGE FORM, BID (SINGLE-DOSE CONTAINER)
  14. SERETIDE [Suspect]
     Active Substance: FLUTICASONE PROPIONATE\SALMETEROL XINAFOATE
     Dosage: 2 DOSAGE FORM, BID (SINGLE-DOSE CONTAINER)
     Route: 055
  15. SERETIDE [Suspect]
     Active Substance: FLUTICASONE PROPIONATE\SALMETEROL XINAFOATE
     Dosage: 2 DOSAGE FORM, BID (SINGLE-DOSE CONTAINER)
     Route: 055
  16. SERETIDE [Suspect]
     Active Substance: FLUTICASONE PROPIONATE\SALMETEROL XINAFOATE
     Dosage: 2 DOSAGE FORM, BID (SINGLE-DOSE CONTAINER)
  17. ESOMEPRAZOLE [Suspect]
     Active Substance: ESOMEPRAZOLE
     Indication: Gastrooesophageal reflux disease
     Dosage: 1 DOSAGE FORM, QD
  18. ESOMEPRAZOLE [Suspect]
     Active Substance: ESOMEPRAZOLE
     Dosage: 1 DOSAGE FORM, QD
     Route: 048
  19. ESOMEPRAZOLE [Suspect]
     Active Substance: ESOMEPRAZOLE
     Dosage: 1 DOSAGE FORM, QD
     Route: 048
  20. ESOMEPRAZOLE [Suspect]
     Active Substance: ESOMEPRAZOLE
     Dosage: 1 DOSAGE FORM, QD
  21. EBASTINE [Suspect]
     Active Substance: EBASTINE
     Indication: Asthma
     Dosage: 2 DOSAGE FORM, QD
  22. EBASTINE [Suspect]
     Active Substance: EBASTINE
     Dosage: 2 DOSAGE FORM, QD
     Route: 048
  23. EBASTINE [Suspect]
     Active Substance: EBASTINE
     Dosage: 2 DOSAGE FORM, QD
     Route: 048
  24. EBASTINE [Suspect]
     Active Substance: EBASTINE
     Dosage: 2 DOSAGE FORM, QD
  25. ALBUTEROL [Suspect]
     Active Substance: ALBUTEROL
     Indication: Asthma
  26. ALBUTEROL [Suspect]
     Active Substance: ALBUTEROL
     Route: 055
  27. ALBUTEROL [Suspect]
     Active Substance: ALBUTEROL
     Route: 055
  28. ALBUTEROL [Suspect]
     Active Substance: ALBUTEROL
  29. ELEXACAFTOR\IVACAFTOR\TEZACAFTOR [Suspect]
     Active Substance: ELEXACAFTOR\IVACAFTOR\TEZACAFTOR
     Indication: Cystic fibrosis
     Dosage: 2 DOSAGE FORM, QD
     Dates: start: 2021
  30. ELEXACAFTOR\IVACAFTOR\TEZACAFTOR [Suspect]
     Active Substance: ELEXACAFTOR\IVACAFTOR\TEZACAFTOR
     Dosage: 2 DOSAGE FORM, QD
     Route: 048
     Dates: start: 2021
  31. ELEXACAFTOR\IVACAFTOR\TEZACAFTOR [Suspect]
     Active Substance: ELEXACAFTOR\IVACAFTOR\TEZACAFTOR
     Dosage: 2 DOSAGE FORM, QD
     Route: 048
     Dates: start: 2021
  32. ELEXACAFTOR\IVACAFTOR\TEZACAFTOR [Suspect]
     Active Substance: ELEXACAFTOR\IVACAFTOR\TEZACAFTOR
     Dosage: 2 DOSAGE FORM, QD
     Dates: start: 2021
  33. KALYDECO [Suspect]
     Active Substance: IVACAFTOR
     Indication: Cystic fibrosis
     Dosage: 2 DOSAGE FORM, QD
     Dates: start: 2021
  34. KALYDECO [Suspect]
     Active Substance: IVACAFTOR
     Dosage: 2 DOSAGE FORM, QD
     Route: 048
     Dates: start: 2021
  35. KALYDECO [Suspect]
     Active Substance: IVACAFTOR
     Dosage: 2 DOSAGE FORM, QD
     Route: 048
     Dates: start: 2021
  36. KALYDECO [Suspect]
     Active Substance: IVACAFTOR
     Dosage: 2 DOSAGE FORM, QD
     Dates: start: 2021

REACTIONS (1)
  - Dental caries [Not Recovered/Not Resolved]

NARRATIVE: CASE EVENT DATE: 20240101
